FAERS Safety Report 15734775 (Version 4)
Quarter: 2019Q3

REPORT INFORMATION
  Report Type: Spontaneous
  Country: CA (occurrence: CA)
  Receive Date: 20181218
  Receipt Date: 20190916
  Transmission Date: 20191004
  Serious: Yes (Disabling, Other)
  Sender: FDA-Public Use
  Company Number: CA-PFIZER INC-2018312898

PATIENT
  Age: 61 Year
  Sex: Female

DRUGS (5)
  1. ENBREL [Suspect]
     Active Substance: ETANERCEPT
     Indication: RHEUMATOID ARTHRITIS
     Dosage: 50 MILLIGRAM, QWK
     Dates: start: 2016, end: 20180729
  2. ENBREL [Suspect]
     Active Substance: ETANERCEPT
     Dosage: 50 MILLIGRAM, QWK
     Dates: start: 2018
  3. METHOTREXATE SODIUM. [Suspect]
     Active Substance: METHOTREXATE SODIUM
     Indication: RHEUMATOID ARTHRITIS
     Dosage: 10 MILLIGRAM
     Dates: start: 2012
  4. PLAQUENIL [Concomitant]
     Active Substance: HYDROXYCHLOROQUINE SULFATE
     Indication: RHEUMATOID ARTHRITIS
     Dosage: 200 MILLIGRAM, QD
     Route: 048
     Dates: start: 2012
  5. NAPROSYN [Suspect]
     Active Substance: NAPROXEN
     Indication: RHEUMATOID ARTHRITIS
     Dosage: 500 MILLIGRAM, QD
     Route: 048

REACTIONS (5)
  - Condition aggravated [Not Recovered/Not Resolved]
  - Drug ineffective [Unknown]
  - Drug ineffective [Not Recovered/Not Resolved]
  - Hypersensitivity [Not Recovered/Not Resolved]
  - Rheumatoid arthritis [Unknown]
